FAERS Safety Report 8363743-3 (Version None)
Quarter: 2012Q2

REPORT INFORMATION
  Report Type: 
  Country: None (occurrence: None)
  Receive Date: 20120516
  Receipt Date: 20120506
  Transmission Date: 20120825
  Serious: Yes (Other)
  Sender: FDA-Public Use
  Company Number: FR-EISAI INC-E3810-05517-SPO-FR

PATIENT
  Age: 48 Year
  Sex: Male

DRUGS (1)
  1. RABEPRAZOLE SODIUM [Suspect]
     Route: 048
     Dates: start: 20120101, end: 20120101

REACTIONS (2)
  - ECZEMA [None]
  - RASH [None]
